FAERS Safety Report 23310262 (Version 9)
Quarter: 2025Q3

REPORT INFORMATION
  Report Type: Report from Study
  Country: US (occurrence: US)
  Receive Date: 20231218
  Receipt Date: 20250716
  Transmission Date: 20251020
  Serious: Yes (Death, Hospitalization, Other)
  Sender: HLS THERAPEUTICS
  Company Number: US-HLS-202105359

PATIENT
  Age: 64 Year
  Sex: Male

DRUGS (5)
  1. CLOZARIL [Suspect]
     Active Substance: CLOZAPINE
     Indication: Product used for unknown indication
     Route: 065
  2. CLOZARIL [Suspect]
     Active Substance: CLOZAPINE
     Indication: Product used for unknown indication
     Route: 048
  3. CLOZARIL [Suspect]
     Active Substance: CLOZAPINE
     Indication: Product used for unknown indication
     Route: 065
  4. CLOZARIL [Suspect]
     Active Substance: CLOZAPINE
     Indication: Product used for unknown indication
     Dosage: DECREASE IN DOSE: 7 TABLETS EVERY DAY BY ORAL ROUTE AT BEDTIME
     Route: 048
  5. CLOZARIL [Suspect]
     Active Substance: CLOZAPINE
     Indication: Product used for unknown indication
     Dosage: CLOZARIL 100MG TAB TAKE 8 TABLETS EVERY DAY BY ORAL ROUTE AT BEDTIME
     Route: 048

REACTIONS (5)
  - Fall [Unknown]
  - Asthenia [Unknown]
  - Pneumonia [Fatal]
  - Drug ineffective [Unknown]
  - Fatigue [Unknown]
